FAERS Safety Report 13392923 (Version 1)
Quarter: 2017Q1

REPORT INFORMATION
  Report Type: Spontaneous
  Country: GB (occurrence: GB)
  Receive Date: 20170331
  Receipt Date: 20170331
  Transmission Date: 20170429
  Serious: Yes (Other)
  Sender: FDA-Public Use
  Company Number: GB-MYLANLABS-2017M1019902

PATIENT

DRUGS (3)
  1. CLOZARIL [Suspect]
     Active Substance: CLOZAPINE
     Dosage: 50 MG, AM
     Dates: start: 20170324
  2. CLOZARIL [Suspect]
     Active Substance: CLOZAPINE
     Dosage: 475 MG, PM
     Dates: start: 20170324
  3. CLOZARIL [Suspect]
     Active Substance: CLOZAPINE
     Indication: SCHIZOPHRENIA
     Dosage: UNK
     Route: 048
     Dates: start: 19951024

REACTIONS (3)
  - Cerebrovascular accident [Unknown]
  - Malaise [Unknown]
  - Dyspnoea [Unknown]
